FAERS Safety Report 8208862-7 (Version None)
Quarter: 2012Q1

REPORT INFORMATION
  Report Type: 
  Country: None (occurrence: None)
  Receive Date: 20120314
  Receipt Date: 20120312
  Transmission Date: 20120608
  Serious: Yes (Death, Hospitalization, Disabling, Other)
  Sender: FDA-Public Use
  Company Number: US-MERCK-1111USA01295

PATIENT
  Age: 82 Year
  Sex: Female

DRUGS (7)
  1. FOSAMAX [Suspect]
     Indication: OSTEOPOROSIS
     Route: 048
     Dates: start: 20001215, end: 20090101
  2. FOSAMAX [Suspect]
     Route: 048
     Dates: start: 19991015
  3. CALCIUM (UNSPECIFIED) [Concomitant]
     Route: 048
  4. FOSAMAX [Suspect]
     Indication: OSTEOPOROSIS PROPHYLAXIS
     Route: 048
     Dates: start: 20001215, end: 20090101
  5. VITAMINS (UNSPECIFIED) [Concomitant]
     Route: 048
  6. FOSAMAX [Suspect]
     Route: 048
     Dates: start: 19991015
  7. ALENDRONATE SODIUM [Suspect]
     Indication: OSTEOPOROSIS
     Route: 048
     Dates: start: 19990101, end: 20090101

REACTIONS (67)
  - CARDIOMEGALY [None]
  - FALL [None]
  - GASTROOESOPHAGEAL REFLUX DISEASE [None]
  - BENIGN NEOPLASM OF SKIN [None]
  - CYSTITIS [None]
  - CAROTID ARTERY STENOSIS [None]
  - SEBORRHOEIC KERATOSIS [None]
  - VENTRICULAR EXTRASYSTOLES [None]
  - VENOUS INSUFFICIENCY [None]
  - UPPER RESPIRATORY TRACT INFECTION [None]
  - DERMATITIS [None]
  - AVULSION FRACTURE [None]
  - ADVERSE EVENT [None]
  - CARDIAC FAILURE CONGESTIVE [None]
  - LYMPHOMA [None]
  - LACUNAR INFARCTION [None]
  - CONSTIPATION [None]
  - HYPOKALAEMIA [None]
  - FACE OEDEMA [None]
  - CHEST PAIN [None]
  - GRIEF REACTION [None]
  - TRACHEOBRONCHITIS [None]
  - STRESS URINARY INCONTINENCE [None]
  - EARLY SATIETY [None]
  - DIPLOPIA [None]
  - DEPRESSION [None]
  - FEMUR FRACTURE [None]
  - CEREBRAL INFARCTION [None]
  - ABSCESS NECK [None]
  - ANAEMIA POSTOPERATIVE [None]
  - BRONCHITIS [None]
  - ROTATOR CUFF SYNDROME [None]
  - SPINAL COMPRESSION FRACTURE [None]
  - HEADACHE [None]
  - OEDEMA PERIPHERAL [None]
  - PARAESTHESIA [None]
  - URGE INCONTINENCE [None]
  - TRANSIENT ISCHAEMIC ATTACK [None]
  - LIMB DISCOMFORT [None]
  - PERIARTHRITIS [None]
  - CEREBROVASCULAR ACCIDENT [None]
  - OSTEOARTHRITIS [None]
  - SKIN LESION [None]
  - PAIN IN EXTREMITY [None]
  - MUSCULAR WEAKNESS [None]
  - OSTEOPENIA [None]
  - GAIT DISTURBANCE [None]
  - BASAL CELL CARCINOMA [None]
  - BREAST CANCER [None]
  - PNEUMONIA [None]
  - CHRONIC OBSTRUCTIVE PULMONARY DISEASE [None]
  - CAROTID ARTERY OCCLUSION [None]
  - ARTHROPOD BITE [None]
  - URTICARIA [None]
  - HYPOACUSIS [None]
  - FRACTURE NONUNION [None]
  - ECCHYMOSIS [None]
  - BURSITIS [None]
  - BREAST MASS [None]
  - ANXIETY [None]
  - CONFUSIONAL STATE [None]
  - MUSCLE STRAIN [None]
  - OEDEMA [None]
  - LARYNGITIS [None]
  - EPISTAXIS [None]
  - DIZZINESS POSTURAL [None]
  - EXOSTOSIS [None]
